FAERS Safety Report 17361709 (Version 1)
Quarter: 2020Q1

REPORT INFORMATION
  Report Type: Spontaneous
  Country: US (occurrence: US)
  Receive Date: 20200131
  Receipt Date: 20200131
  Transmission Date: 20200409
  Serious: Yes (Hospitalization)
  Sender: FDA-Public Use
  Company Number: None

PATIENT
  Age: 49 Year
  Sex: Male
  Weight: 138.9 kg

DRUGS (7)
  1. APIXABAN [Concomitant]
     Active Substance: APIXABAN
     Dates: start: 20190802
  2. COLCHICINE. [Concomitant]
     Active Substance: COLCHICINE
     Dates: start: 20190809
  3. METOPROLOL SUCCINATE. [Concomitant]
     Active Substance: METOPROLOL SUCCINATE
     Dates: start: 20191127
  4. IMDUR [Concomitant]
     Active Substance: ISOSORBIDE MONONITRATE
     Dates: start: 20191125
  5. DOFETILIDE. [Suspect]
     Active Substance: DOFETILIDE
     Indication: ATRIAL FIBRILLATION
     Route: 048
     Dates: start: 20191129, end: 20200124
  6. ONDANSETRON [Concomitant]
     Active Substance: ONDANSETRON
     Dates: start: 20200114
  7. ADVAIR DISKUS [Concomitant]
     Active Substance: FLUTICASONE PROPIONATE\SALMETEROL XINAFOATE
     Dates: start: 20200122

REACTIONS (9)
  - Alanine aminotransferase increased [None]
  - Blood bilirubin increased [None]
  - Therapy cessation [None]
  - Aspartate aminotransferase increased [None]
  - Hepatotoxicity [None]
  - Vomiting [None]
  - Liver function test abnormal [None]
  - Sinus bradycardia [None]
  - Nausea [None]

NARRATIVE: CASE EVENT DATE: 20200124
